FAERS Safety Report 16849765 (Version 1)
Quarter: 2019Q3

REPORT INFORMATION
  Report Type: Spontaneous
  Country: US (occurrence: US)
  Receive Date: 20190925
  Receipt Date: 20190925
  Transmission Date: 20191005
  Serious: Yes (Hospitalization, Other)
  Sender: FDA-Public Use
  Company Number: US-GLAXOSMITHKLINE-US2019170980

PATIENT
  Age: 49 Year
  Sex: Female

DRUGS (2)
  1. TRAZODONE [Concomitant]
     Active Substance: TRAZODONE HYDROCHLORIDE
     Indication: PRODUCT USED FOR UNKNOWN INDICATION
     Dosage: UNK
     Route: 065
  2. BENLYSTA [Suspect]
     Active Substance: BELIMUMAB
     Indication: SYSTEMIC LUPUS ERYTHEMATOSUS
     Dosage: UNK UNK, WE
     Route: 058
     Dates: start: 201810

REACTIONS (11)
  - Pleurisy [Unknown]
  - Arrhythmia [Recovering/Resolving]
  - Fatigue [Unknown]
  - Headache [Unknown]
  - Seizure [Unknown]
  - Insomnia [Unknown]
  - Haemorrhagic stroke [Unknown]
  - Upper respiratory tract infection [Unknown]
  - Ventricular tachycardia [Unknown]
  - Sinusitis [Unknown]
  - Oropharyngeal pain [Unknown]

NARRATIVE: CASE EVENT DATE: 20190725
